FAERS Safety Report 16713994 (Version 10)
Quarter: 2024Q4

REPORT INFORMATION
  Report Type: Spontaneous
  Country: BR (occurrence: BR)
  Receive Date: 20190819
  Receipt Date: 20241023
  Transmission Date: 20250115
  Serious: Yes (Other)
  Sender: GLAXOSMITHKLINE
  Company Number: BR-GLAXOSMITHKLINE-BR2019GSK077609

PATIENT

DRUGS (1)
  1. BENLYSTA [Suspect]
     Active Substance: BELIMUMAB
     Indication: Systemic lupus erythematosus
     Dosage: 640 MG, Q4W, 2X120 MG/1X400 MG
     Dates: start: 20180917

REACTIONS (18)
  - Sjogren^s syndrome [Unknown]
  - Weight increased [Unknown]
  - Arthralgia [Unknown]
  - Oropharyngeal pain [Unknown]
  - Blister [Not Recovered/Not Resolved]
  - Wound [Unknown]
  - Lacrimation increased [Unknown]
  - Visual impairment [Unknown]
  - Lacrimal disorder [Unknown]
  - Bone disorder [Unknown]
  - Punctal plug insertion [Unknown]
  - Eyelid cyst [Unknown]
  - Limb injury [Unknown]
  - Skin lesion [Unknown]
  - Impaired healing [Unknown]
  - Inappropriate schedule of product administration [Unknown]
  - Product dose omission issue [Unknown]
  - Product availability issue [Unknown]

NARRATIVE: CASE EVENT DATE: 20210101
